FAERS Safety Report 7817550-8 (Version None)
Quarter: 2011Q4

REPORT INFORMATION
  Report Type: 
  Country: None (occurrence: None)
  Receive Date: 20111017
  Receipt Date: 20111011
  Transmission Date: 20120403
  Serious: Yes (Life-Threatening, Hospitalization)
  Sender: FDA-Public Use
  Company Number: US-JNJFOC-20111005071

PATIENT
  Age: 42 Year
  Sex: Male

DRUGS (4)
  1. ULTRAM [Suspect]
     Indication: PRODUCT USED FOR UNKNOWN INDICATION
     Dosage: 50 MG
     Route: 048
  2. ANTICONVULSANT [Suspect]
     Indication: PRODUCT USED FOR UNKNOWN INDICATION
     Dosage: 1000MG
     Route: 048
  3. BENZODIAZEPINE DERIVATIVES [Suspect]
     Indication: PRODUCT USED FOR UNKNOWN INDICATION
     Dosage: 0.5 MG
     Route: 048
  4. ANTIPSYCHOTIC [Suspect]
     Indication: PRODUCT USED FOR UNKNOWN INDICATION
     Dosage: 10 MG
     Route: 048

REACTIONS (13)
  - HEART RATE DECREASED [None]
  - HYPOTENSION [None]
  - ABDOMINAL PAIN [None]
  - BLOOD CHLORIDE ABNORMAL [None]
  - TOXICITY TO VARIOUS AGENTS [None]
  - RESPIRATORY RATE DECREASED [None]
  - AGITATION [None]
  - BLOOD GLUCOSE ABNORMAL [None]
  - TACHYCARDIA [None]
  - DRY SKIN [None]
  - CARBON DIOXIDE ABNORMAL [None]
  - BLOOD PRESSURE SYSTOLIC INCREASED [None]
  - MULTIPLE DRUG OVERDOSE [None]
